FAERS Safety Report 7214472-0 (Version None)
Quarter: 2011Q1

REPORT INFORMATION
  Report Type: 
  Country: None (occurrence: None)
  Receive Date: 20110107
  Receipt Date: 20110103
  Transmission Date: 20110831
  Serious: Yes (Death)
  Sender: FDA-Public Use
  Company Number: PHHY2010DE79558

PATIENT
  Sex: Female
  Weight: 60 kg

DRUGS (1)
  1. ZOLEDRONATE [Suspect]
     Indication: PROPHYLAXIS
     Dosage: 4 MG EVERY 4 WEEKS
     Route: 042
     Dates: start: 20091229, end: 20091229

REACTIONS (1)
  - NEOPLASM MALIGNANT [None]
